FAERS Safety Report 12726826 (Version 3)
Quarter: 2016Q4

REPORT INFORMATION
  Report Type: Spontaneous
  Country: US (occurrence: US)
  Receive Date: 20160908
  Receipt Date: 20161227
  Transmission Date: 20170207
  Serious: No
  Sender: FDA-Public Use
  Company Number: US-TEVA-677334USA

PATIENT
  Sex: Female

DRUGS (1)
  1. NUVIGIL [Suspect]
     Active Substance: ARMODAFINIL
     Dosage: 150 MILLIGRAM DAILY;
     Route: 065
     Dates: start: 2016

REACTIONS (2)
  - Peripheral swelling [Recovering/Resolving]
  - Bunion operation [Unknown]

NARRATIVE: CASE EVENT DATE: 201607
